FAERS Safety Report 13471261 (Version 1)
Quarter: 2017Q2

REPORT INFORMATION
  Report Type: Spontaneous
  Country: US (occurrence: US)
  Receive Date: 20170421
  Receipt Date: 20170421
  Transmission Date: 20170830
  Serious: No
  Sender: FDA-Public Use
  Company Number: None

PATIENT
  Age: 54 Year
  Sex: Female
  Weight: 74.91 kg

DRUGS (2)
  1. ESTRADIOL TRANSDERMAL SYSTEM [Suspect]
     Active Substance: ESTRADIOL
     Indication: ANGIOPATHY
     Dosage: 0.05MG/2H
     Route: 062
     Dates: start: 20170405
  2. ESTRADIOL PATCH 0.05MG/124 HH [Suspect]
     Active Substance: ESTRADIOL
     Indication: ANGIOPATHY
     Dosage: 0.05MG/24H
     Route: 062
     Dates: start: 20110125, end: 20110202

REACTIONS (2)
  - Application site pruritus [None]
  - Application site rash [None]

NARRATIVE: CASE EVENT DATE: 20170405
